FAERS Safety Report 7022408-0 (Version None)
Quarter: 2010Q3

REPORT INFORMATION
  Report Type: 
  Country: None (occurrence: None)
  Receive Date: 20100930
  Receipt Date: 20100922
  Transmission Date: 20110219
  Serious: Yes (Other)
  Sender: FDA-Public Use
  Company Number: US-SANOFI-AVENTIS-2010SA057777

PATIENT
  Age: 85 Year
  Sex: Female

DRUGS (16)
  1. MULTAQ [Suspect]
     Indication: ATRIAL FIBRILLATION
     Route: 048
     Dates: start: 20100801, end: 20100801
  2. CARVEDILOL [Concomitant]
  3. WARFARIN SODIUM [Concomitant]
  4. IRON [Concomitant]
  5. CALCITRIOL [Concomitant]
  6. PEPCID [Concomitant]
  7. IPRATROPIUM BROMIDE/SALBUTAMOL SULFATE [Concomitant]
  8. NEURONTIN [Concomitant]
  9. LASIX [Concomitant]
  10. NITRO-BID [Concomitant]
  11. NITROGLYCERIN [Concomitant]
     Route: 060
  12. BENICAR [Concomitant]
  13. AVANDIA [Concomitant]
  14. LEVOTHYROXINE SODIUM [Concomitant]
  15. ZOLOFT [Concomitant]
  16. POTASSIUM CHLORIDE [Concomitant]

REACTIONS (1)
  - PULMONARY FIBROSIS [None]
